FAERS Safety Report 6400458-2 (Version None)
Quarter: 2009Q4

REPORT INFORMATION
  Report Type: 
  Country: None (occurrence: None)
  Receive Date: 20091007
  Receipt Date: 20091007
  Transmission Date: 20100525
  Serious: Yes (Other)
  Sender: FDA-Public Use
  Company Number: None

PATIENT
  Age: 50 Year
  Sex: Female
  Weight: 95.2554 kg

DRUGS (1)
  1. ENBREL [Suspect]
     Indication: PSORIATIC ARTHROPATHY
     Dosage: PREFILLED SYRINGE TWICE WEEKLY SQ
     Route: 058
     Dates: start: 20041215, end: 20090530

REACTIONS (1)
  - LATENT TUBERCULOSIS [None]
